FAERS Safety Report 12871041 (Version 1)
Quarter: 2016Q4

REPORT INFORMATION
  Report Type: Spontaneous
  Country: US (occurrence: US)
  Receive Date: 20161020
  Receipt Date: 20161020
  Transmission Date: 20170207
  Serious: No
  Sender: FDA-Public Use
  Company Number: None

PATIENT
  Age: 45 Year
  Sex: Female

DRUGS (1)
  1. HUMIRA [Suspect]
     Active Substance: ADALIMUMAB
     Route: 058
     Dates: start: 20140627, end: 20160820

REACTIONS (4)
  - Contusion [None]
  - Erythema [None]
  - Pruritus [None]
  - Skin lesion [None]

NARRATIVE: CASE EVENT DATE: 20160815
